FAERS Safety Report 8452335-3 (Version None)
Quarter: 2012Q2

REPORT INFORMATION
  Report Type: 
  Country: None (occurrence: None)
  Receive Date: 20120620
  Receipt Date: 20120409
  Transmission Date: 20120825
  Serious: No
  Sender: FDA-Public Use
  Company Number: US-VERTEX PHARMACEUTICALS INC.-AE-2012-004990

PATIENT
  Sex: Male

DRUGS (5)
  1. INCIVEK [Suspect]
     Indication: HEPATITIS C
     Route: 048
     Dates: start: 20120131
  2. SEROQUEL [Concomitant]
  3. CITALOPRAM [Concomitant]
  4. PEGASYS [Concomitant]
     Indication: HEPATITIS C
     Dates: start: 20120131
  5. RIBAVIRIN [Concomitant]
     Indication: HEPATITIS C
     Route: 048
     Dates: start: 20120131

REACTIONS (6)
  - LYMPHADENOPATHY [None]
  - FATIGUE [None]
  - MALAISE [None]
  - ABDOMINAL PAIN [None]
  - DIARRHOEA [None]
  - HAEMORRHOIDS [None]
